FAERS Safety Report 7949021-2 (Version None)
Quarter: 2011Q4

REPORT INFORMATION
  Report Type: 
  Country: None (occurrence: None)
  Receive Date: 20111130
  Receipt Date: 20111118
  Transmission Date: 20120403
  Serious: Yes (Hospitalization, Other)
  Sender: FDA-Public Use
  Company Number: US-ELI_LILLY_AND_COMPANY-US201109001367

PATIENT
  Sex: Female
  Weight: 91.156 kg

DRUGS (3)
  1. FORTEO [Suspect]
     Indication: OSTEOPOROSIS POSTMENOPAUSAL
     Dosage: UNK, UNKNOWN
  2. DYAZIDE [Concomitant]
  3. CRESTOR [Concomitant]

REACTIONS (9)
  - PNEUMONIA [None]
  - INTERVERTEBRAL DISC PROTRUSION [None]
  - CHRONIC OBSTRUCTIVE PULMONARY DISEASE [None]
  - BACK PAIN [None]
  - SPINAL DISORDER [None]
  - ARTHRITIS [None]
  - ARTHRALGIA [None]
  - HYPOAESTHESIA [None]
  - FALL [None]
